FAERS Safety Report 5215209-7 (Version None)
Quarter: 2007Q1

REPORT INFORMATION
  Report Type: 
  Country: None (occurrence: None)
  Receive Date: 20061108
  Receipt Date: 20060815
  Transmission Date: 20070707
  Serious: Yes (Hospitalization, Other)
  Sender: FDA-Public Use
  Company Number: US200608003461

PATIENT
  Age: 55 Year
  Sex: Female

DRUGS (5)
  1. PROZAC [Suspect]
     Indication: DEPRESSION
     Dosage: 20 MG, 2/D, ORAL
     Route: 048
     Dates: start: 19890101
  2. PROZAC WEEKLY [Suspect]
     Indication: DEPRESSION
     Dosage: ORAL
     Route: 048
  3. FORTEO [Suspect]
     Indication: OSTEOPOROSIS
     Dates: start: 20060725
  4. FORTEO [Concomitant]
  5. SYNTHROID [Concomitant]

REACTIONS (6)
  - ACCIDENT AT WORK [None]
  - BIPOLAR DISORDER [None]
  - DRUG INEFFECTIVE [None]
  - PAIN [None]
  - PERSONALITY CHANGE [None]
  - SMOKER [None]
